FAERS Safety Report 7002096-X (Version None)
Quarter: 2010Q3

REPORT INFORMATION
  Report Type: 
  Country: None (occurrence: None)
  Receive Date: 20100920
  Receipt Date: 20091111
  Transmission Date: 20110219
  Serious: No
  Sender: FDA-Public Use
  Company Number: US-ASTRAZENECA-2009UW13115

PATIENT
  Age: 30 Year
  Sex: Female
  Weight: 108.9 kg

DRUGS (9)
  1. SEROQUEL [Suspect]
     Indication: BIPOLAR DISORDER
     Route: 048
     Dates: start: 20020101, end: 20040101
  2. SEROQUEL [Suspect]
     Indication: SCHIZOPHRENIA
     Route: 048
     Dates: start: 20020101, end: 20040101
  3. SEROQUEL [Suspect]
     Indication: DEPRESSION
     Route: 048
     Dates: start: 20020101, end: 20040101
  4. SEROQUEL [Suspect]
     Route: 048
     Dates: start: 20020301
  5. SEROQUEL [Suspect]
     Route: 048
     Dates: start: 20020301
  6. SEROQUEL [Suspect]
     Route: 048
     Dates: start: 20020301
  7. RISPERDAL [Concomitant]
  8. ABILIFY [Concomitant]
     Dates: start: 20020101
  9. TRILAFON [Concomitant]
     Dates: start: 20020101

REACTIONS (3)
  - BLOOD CHOLESTEROL INCREASED [None]
  - OBESITY [None]
  - TYPE 2 DIABETES MELLITUS [None]
